FAERS Safety Report 4889250-8 (Version None)
Quarter: 2006Q1

REPORT INFORMATION
  Report Type: 
  Country: None (occurrence: None)
  Receive Date: 20060120
  Receipt Date: 20060112
  Transmission Date: 20060701
  Serious: Yes (Hospitalization)
  Sender: FDA-Public Use
  Company Number: 230206K06USA

PATIENT
  Age: 42 Year
  Sex: Female

DRUGS (5)
  1. REBIF [Suspect]
     Indication: MULTIPLE SCLEROSIS
     Dosage: 44 MCG, 3 IN 1 WEEKS, SUBCUTANEOUS
     Route: 058
     Dates: end: 20050501
  2. PLAQUENIL [Concomitant]
  3. KLONOPIN [Concomitant]
  4. XANAX [Concomitant]
  5. ZANAFLEX [Concomitant]

REACTIONS (4)
  - CATHETER RELATED COMPLICATION [None]
  - COLLAPSE OF LUNG [None]
  - FEELING ABNORMAL [None]
  - PYREXIA [None]
